FAERS Safety Report 14200939 (Version 1)
Quarter: 2017Q4

REPORT INFORMATION
  Report Type: Spontaneous
  Country: US (occurrence: US)
  Receive Date: 20171117
  Receipt Date: 20171117
  Transmission Date: 20180321
  Serious: Yes (Death, Other)
  Sender: FDA-Public Use
  Company Number: US-BAYER-2017-217880

PATIENT
  Sex: Female

DRUGS (2)
  1. BROMO-SELTZER [CITRIC ACID,PARACETAMOL,SODIUM BICARBONATE] [Concomitant]
     Dosage: UNK UNK, QD
  2. BAYER ASPIRIN [Suspect]
     Active Substance: ASPIRIN
     Indication: PRODUCT USED FOR UNKNOWN INDICATION
     Dosage: UNK UNK, QD
     Route: 065

REACTIONS (2)
  - Colon cancer [Fatal]
  - Product use issue [None]
